FAERS Safety Report 4427669-X (Version None)
Quarter: 2004Q3

REPORT INFORMATION
  Report Type: 
  Country: None (occurrence: None)
  Receive Date: 20040812
  Receipt Date: 20040803
  Transmission Date: 20050211
  Serious: No
  Sender: FDA-Public Use
  Company Number: 04H-163-0269576-00

PATIENT
  Sex: 0

DRUGS (1)
  1. DOBUTAMINE HCL [Suspect]
     Indication: CARDIAC STRESS TEST
     Dosage: 10 MCG/KG/MIN, INCREAS. EVERY 3 MIN. TO MAX.40 MCG/KG/MIN, INTRAVENOUS
     Route: 042

REACTIONS (3)
  - ARRHYTHMIA [None]
  - CARDIAC PROCEDURE COMPLICATION [None]
  - CHEST PAIN [None]
